FAERS Safety Report 10810854 (Version 1)
Quarter: 2015Q1

REPORT INFORMATION
  Report Type: Spontaneous
  Country: JP (occurrence: None)
  Receive Date: 20150212
  Receipt Date: 20150212
  Transmission Date: 20150721
  Serious: Yes (Life-Threatening)
  Sender: FDA-Public Use
  Company Number: 2015JP000773

PATIENT
  Age: 59 Year
  Sex: Male
  Weight: 41 kg

DRUGS (9)
  1. AMLODIPINE [Concomitant]
     Active Substance: AMLODIPINE BESYLATE
  2. KETOBUN A (ALLOPURINOL) [Concomitant]
  3. EPOGIN (EPOETIN BETA) [Concomitant]
  4. MICARDIS [Concomitant]
     Active Substance: TELMISARTAN
  5. ONEALFA [Concomitant]
     Active Substance: ALFACALCIDOL
  6. RIONA (FERRIC CITRATE) FILM-COATED TABLET [Suspect]
     Active Substance: FERRIC CITRATE ANHYDROUS
     Indication: HYPERPHOSPHATAEMIA
     Route: 048
     Dates: start: 20140814
  7. FUTHAN (NAFAMOSTAT MESILATE) [Concomitant]
  8. BAYASPIRIN (ACETYLSALICYLIC ACID) (ACETYLSALICYLIC ACID) [Concomitant]
     Active Substance: ASPIRIN
  9. LASIX [Concomitant]
     Active Substance: FUROSEMIDE

REACTIONS (2)
  - Hypotension [None]
  - Nausea [None]

NARRATIVE: CASE EVENT DATE: 20141231
